FAERS Safety Report 9894928 (Version 1)
Quarter: 2014Q1

REPORT INFORMATION
  Report Type: Report from Study
  Country: VE (occurrence: VE)
  Receive Date: 20140213
  Receipt Date: 20140213
  Transmission Date: 20141002
  Serious: Yes (Hospitalization)
  Sender: FDA-Public Use
  Company Number: PHHY2014VE018102

PATIENT
  Age: 43 Year
  Sex: Female

DRUGS (2)
  1. EXJADE [Suspect]
     Indication: IRON DEFICIENCY ANAEMIA
     Dosage: UNK UKN, UNK
     Route: 048
     Dates: start: 2007, end: 201011
  2. METICORTEN [Concomitant]
     Dosage: UNK UKN, UNK
     Route: 042

REACTIONS (4)
  - Poisoning [Recovered/Resolved]
  - Swelling [Recovered/Resolved]
  - Erythema [Recovered/Resolved]
  - Pruritus [Recovered/Resolved]
